FAERS Safety Report 9354690 (Version 2)
Quarter: 2013Q2

REPORT INFORMATION
  Report Type: Spontaneous
  Country: JP (occurrence: JP)
  Receive Date: 20130619
  Receipt Date: 20130626
  Transmission Date: 20140414
  Serious: Yes (Other)
  Sender: FDA-Public Use
  Company Number: JP-009507513-1306JPN006777

PATIENT
  Age: 68 Year
  Sex: Female

DRUGS (4)
  1. FOSAMAC TABLETS-5 [Suspect]
     Dosage: DAILY DOSE UNKNOWN
     Route: 048
     Dates: start: 200301, end: 200305
  2. [THERAPY UNSPECIFIED] [Suspect]
     Dosage: DAILY DOSE UNKNOWN
     Route: 065
  3. [THERAPY UNSPECIFIED] [Suspect]
     Dosage: DAILY DOSE UNKNOWN
     Route: 065
  4. [THERAPY UNSPECIFIED] [Suspect]
     Dosage: DAILY DOSE UNKNOWN
     Route: 065

REACTIONS (1)
  - Osteonecrosis [Unknown]
